FAERS Safety Report 6402411-1 (Version None)
Quarter: 2009Q4

REPORT INFORMATION
  Report Type: 
  Country: None (occurrence: None)
  Receive Date: 20091015
  Receipt Date: 20091007
  Transmission Date: 20100525
  Serious: Yes (Other)
  Sender: FDA-Public Use
  Company Number: US-GENENTECH-292028

PATIENT
  Age: 70 Year
  Sex: Female
  Weight: 54.5 kg

DRUGS (1)
  1. AVASTIN [Suspect]
     Indication: MACULAR DEGENERATION
     Dosage: UNK
     Route: 031
     Dates: start: 20041001

REACTIONS (2)
  - EYE INFECTION [None]
  - VISUAL ACUITY REDUCED [None]
